FAERS Safety Report 8493893-2 (Version None)
Quarter: 2012Q3

REPORT INFORMATION
  Report Type: 
  Country: None (occurrence: None)
  Receive Date: 20120707
  Receipt Date: 20120628
  Transmission Date: 20120928
  Serious: Yes (Other)
  Sender: FDA-Public Use
  Company Number: FR-BAYER-2012-064883

PATIENT
  Age: 25 Year
  Sex: Female

DRUGS (5)
  1. CLOTRIMAZOLE [Suspect]
     Indication: PRURITUS
     Dosage: UNK
     Dates: start: 20120601
  2. CLOTRIMAZOLE [Suspect]
  3. CLOTRIMAZOLE [Suspect]
     Indication: GENITAL DISCHARGE
  4. TRIPHASIL-21 [Concomitant]
     Indication: CONTRACEPTION
  5. CLOTRIMAZOLE [Suspect]
     Indication: ERYTHEMA

REACTIONS (2)
  - VAGINAL HAEMORRHAGE [None]
  - METRORRHAGIA [None]
